FAERS Safety Report 7734591-X (Version None)
Quarter: 2011Q3

REPORT INFORMATION
  Report Type: 
  Country: None (occurrence: None)
  Receive Date: 20110907
  Receipt Date: 20110830
  Transmission Date: 20111222
  Serious: Yes (Other)
  Sender: FDA-Public Use
  Company Number: US-ASTRAZENECA-2011SE51993

PATIENT
  Age: 53 Year
  Sex: Male
  Weight: 88.9 kg

DRUGS (9)
  1. ULTRAM [Concomitant]
  2. KLONOPIN [Concomitant]
  3. SEROQUEL [Suspect]
     Indication: DEPRESSION
     Route: 048
     Dates: start: 20050101
  4. CYMBALTA [Concomitant]
  5. DILANTIN [Concomitant]
  6. NEURONTIN [Concomitant]
  7. LISINOPRIL [Concomitant]
  8. SEROQUEL [Suspect]
     Route: 048
  9. XANAX [Concomitant]
     Indication: SLEEP DISORDER
     Dosage: PRN

REACTIONS (2)
  - LYMPHOMA [None]
  - DEPRESSION [None]
